FAERS Safety Report 9306586 (Version 1)
Quarter: 2013Q2

REPORT INFORMATION
  Report Type: Spontaneous
  Country: US (occurrence: US)
  Receive Date: 20130523
  Receipt Date: 20130523
  Transmission Date: 20140414
  Serious: No
  Sender: FDA-Public Use
  Company Number: US-FOUGERA-2012FO001118

PATIENT
  Age: 68 Year
  Sex: Male
  Weight: 93.52 kg

DRUGS (4)
  1. ZONALON (PRUDOXIN CREAM) [Suspect]
     Indication: HERPES ZOSTER
     Route: 061
     Dates: start: 20120423, end: 20120518
  2. UNK ANTIBIOTIC [Concomitant]
     Indication: HERPES ZOSTER
     Route: 048
     Dates: start: 20120409, end: 20120517
  3. NEURONTIN [Concomitant]
     Indication: HERPES ZOSTER
     Route: 048
     Dates: start: 20120409, end: 20120518
  4. PREDNISONE [Concomitant]
     Indication: HERPES ZOSTER
     Route: 048
     Dates: start: 20120410, end: 20120517

REACTIONS (5)
  - Mastication disorder [Not Recovered/Not Resolved]
  - Dysgeusia [Not Recovered/Not Resolved]
  - Off label use [Recovered/Resolved]
  - Incorrect drug administration duration [Recovered/Resolved]
  - Retching [Not Recovered/Not Resolved]
